FAERS Safety Report 18041717 (Version 4)
Quarter: 2020Q3

REPORT INFORMATION
  Report Type: Report from Study
  Country: US (occurrence: US)
  Receive Date: 20200720
  Receipt Date: 20200924
  Transmission Date: 20201103
  Serious: Yes (Death)
  Sender: FDA-Public Use
  Company Number: US-BIOGEN-2020BI00898062

PATIENT
  Age: 78 Year
  Sex: Female

DRUGS (2)
  1. TYSABRI [Suspect]
     Active Substance: NATALIZUMAB
     Dosage: INFUSED OVER ONE HOUR
     Route: 042
  2. TYSABRI [Suspect]
     Active Substance: NATALIZUMAB
     Indication: MULTIPLE SCLEROSIS
     Route: 065
     Dates: start: 20110928

REACTIONS (1)
  - Death [Fatal]

NARRATIVE: CASE EVENT DATE: 20200617
